FAERS Safety Report 8813396 (Version 1)
Quarter: 2012Q4

REPORT INFORMATION
  Report Type: 
  Country: CA (occurrence: CA)
  Receive Date: 20120927
  Receipt Date: 20120927
  Transmission Date: 20130627
  Serious: Yes (Other)
  Sender: FDA-Public Use
  Company Number: CA-B.I. PHARMACEUTICALS,INC./RIDGEFIELD-2012-CN-01940CN

PATIENT
  Age: 71 Year
  Sex: Male

DRUGS (7)
  1. MICARDIS [Suspect]
     Dosage: 80 mg
     Route: 048
  2. ASPIRIN [Concomitant]
     Route: 065
  3. BROMAZEPAM [Concomitant]
     Route: 065
  4. GLUCONORM [Concomitant]
     Route: 065
  5. METFORMIN [Concomitant]
     Route: 065
  6. NORVASC [Concomitant]
     Route: 065
  7. TENORMIN [Concomitant]
     Route: 065

REACTIONS (1)
  - Blood glucose increased [Recovered/Resolved]
